FAERS Safety Report 5442920-5 (Version None)
Quarter: 2007Q3

REPORT INFORMATION
  Report Type: 
  Country: None (occurrence: None)
  Receive Date: 20070830
  Receipt Date: 20070810
  Transmission Date: 20080115
  Serious: Yes (Life-Threatening, Hospitalization)
  Sender: FDA-Public Use
  Company Number: S07-FRA-03638-01

PATIENT
  Age: 79 Year
  Sex: Male

DRUGS (8)
  1. ESCITALOPRAM [Suspect]
     Dosage: 10 MG QD PO
     Route: 048
     Dates: start: 20070701, end: 20070715
  2. INDAPAMIDE [Suspect]
     Indication: HYPERTENSION
     Dosage: 1.5 MG QD
     Dates: end: 20070715
  3. MOPRAL (OMEPRAZOLE) [Concomitant]
  4. PLAVIX [Concomitant]
  5. COZAAR [Concomitant]
  6. PRAVASTATIN [Concomitant]
  7. PROPRANOLOL [Concomitant]
  8. ACETAMINOPHEN [Concomitant]

REACTIONS (13)
  - BEDRIDDEN [None]
  - BLOOD CHLORIDE DECREASED [None]
  - BLOOD OSMOLARITY DECREASED [None]
  - BLOOD POTASSIUM DECREASED [None]
  - CONFUSIONAL STATE [None]
  - DISORIENTATION [None]
  - FALL [None]
  - GENERAL PHYSICAL HEALTH DETERIORATION [None]
  - GLASGOW COMA SCALE ABNORMAL [None]
  - HYPONATRAEMIA [None]
  - MALAISE [None]
  - SOMNOLENCE [None]
  - URINE OSMOLARITY INCREASED [None]
